FAERS Safety Report 6763538-8 (Version None)
Quarter: 2010Q2

REPORT INFORMATION
  Report Type: 
  Country: None (occurrence: None)
  Receive Date: 20100610
  Receipt Date: 20100528
  Transmission Date: 20101027
  Serious: Yes (Other)
  Sender: FDA-Public Use
  Company Number: PHHY2010IT35052

PATIENT
  Sex: Male

DRUGS (7)
  1. ZOMETA [Suspect]
     Indication: PROSTATE CANCER METASTATIC
     Dosage: 4 MG, MONTHLY
     Route: 042
     Dates: start: 20081113, end: 20100305
  2. URBASON [Concomitant]
     Dosage: UNK
     Route: 042
  3. FLEBOCORTID [Concomitant]
     Dosage: UNK
     Dates: start: 20091014
  4. NAVOBAN [Concomitant]
     Dosage: 15 MG/5 ML
     Route: 042
     Dates: start: 20091014, end: 20100103
  5. DELTACORTENE [Concomitant]
     Dosage: UNK
     Route: 048
     Dates: start: 20091014
  6. TRIMETON [Concomitant]
     Dosage: UNK
     Route: 042
     Dates: start: 20091010
  7. TAXOL [Concomitant]
     Dosage: UNK
     Route: 042
     Dates: start: 20091014

REACTIONS (2)
  - OSTEONECROSIS OF JAW [None]
  - SURGERY [None]
